FAERS Safety Report 9975529 (Version 2)
Quarter: 2014Q1

REPORT INFORMATION
  Report Type: Spontaneous
  Country: JP (occurrence: JP)
  Receive Date: 20140306
  Receipt Date: 20140324
  Transmission Date: 20141002
  Serious: Yes (Life-Threatening)
  Sender: FDA-Public Use
  Company Number: JP-TEVA-464258ISR

PATIENT
  Age: 88 Year
  Sex: Male
  Weight: 51 kg

DRUGS (9)
  1. RANITIDINE HCL,INJ,2.5%2ML1AMPOULE [Suspect]
     Indication: PROPHYLAXIS AGAINST GASTROINTESTINAL ULCER
     Route: 042
     Dates: start: 20140216, end: 20140217
  2. BUP-4 TABLET 20 [Suspect]
     Indication: POLLAKIURIA
     Dosage: 40 MILLIGRAM DAILY;
     Route: 048
     Dates: end: 20140217
  3. DEPAS TABLETS [Suspect]
     Indication: INSOMNIA
     Dosage: .5  DAILY;
     Route: 048
     Dates: end: 20140217
  4. ADALAT-CR20 [Concomitant]
     Indication: HYPERTENSION
     Dosage: 20 MILLIGRAM DAILY;
     Route: 048
  5. RENIVACE TABLETS 5 [Concomitant]
     Indication: HYPERTENSION
     Dosage: 10 MILLIGRAM DAILY;
     Route: 048
  6. URALYT [Concomitant]
     Indication: GOUT
     Dosage: 4 TABLET DAILY;
     Route: 048
  7. PLETAAL OD TABLETS 100MG [Concomitant]
     Indication: CEREBRAL INFARCTION
     Dosage: 200 MILLIGRAM DAILY;
     Route: 048
  8. AZILVA TABLETS 20MG [Concomitant]
     Indication: HYPERTENSION
     Dosage: 80 MILLIGRAM DAILY;
     Route: 048
     Dates: end: 20140215
  9. URIEF TAB. 4MG [Concomitant]
     Dosage: 16 MILLIGRAM DAILY;
     Route: 048

REACTIONS (1)
  - Rhabdomyolysis [Recovered/Resolved]
